FAERS Safety Report 10387728 (Version 1)
Quarter: 2014Q3

REPORT INFORMATION
  Report Type: Report from Study
  Country: US (occurrence: US)
  Receive Date: 20140815
  Receipt Date: 20140815
  Transmission Date: 20150326
  Serious: Yes (Hospitalization, Other)
  Sender: FDA-Public Use
  Company Number: US-ABBVIE-14P-163-1270519-00

PATIENT
  Age: 27 Year
  Sex: Female

DRUGS (2)
  1. METFORMIN [Concomitant]
     Active Substance: METFORMIN HYDROCHLORIDE
     Indication: POLYCYSTIC OVARIES
  2. HUMIRA [Suspect]
     Active Substance: ADALIMUMAB
     Indication: PSORIASIS
     Dates: start: 201404

REACTIONS (5)
  - Compartment syndrome [Recovering/Resolving]
  - Psoriasis [Not Recovered/Not Resolved]
  - Road traffic accident [Recovering/Resolving]
  - Joint injury [Recovering/Resolving]
  - Laceration [Recovered/Resolved]

NARRATIVE: CASE EVENT DATE: 20140630
